FAERS Safety Report 5976717-4 (Version None)
Quarter: 2008Q4

REPORT INFORMATION
  Report Type: 
  Country: None (occurrence: None)
  Receive Date: 20081128
  Receipt Date: 20081118
  Transmission Date: 20090506
  Serious: Yes (Other)
  Sender: FDA-Public Use
  Company Number: CERZ-1000433

PATIENT
  Age: 84 Year
  Sex: Female
  Weight: 44 kg

DRUGS (1)
  1. CEREZYME [Suspect]
     Indication: GAUCHER'S DISEASE
     Dosage: 2400 U/KG, Q2W, INTRAVENOUS
     Route: 042

REACTIONS (3)
  - FALL [None]
  - HIP FRACTURE [None]
  - LEUKAEMIA [None]
